FAERS Safety Report 19177205 (Version 1)
Quarter: 2021Q2

REPORT INFORMATION
  Report Type: Spontaneous
  Country: GR (occurrence: GR)
  Receive Date: 20210425
  Receipt Date: 20210425
  Transmission Date: 20210717
  Serious: Yes (Hospitalization, Other)
  Sender: FDA-Public Use
  Company Number: GR-JNJFOC-20210446736

PATIENT
  Age: 63 Year
  Sex: Male

DRUGS (2)
  1. XARELTO [Suspect]
     Active Substance: RIVAROXABAN
     Indication: ARRHYTHMIA
     Dosage: 15 MG
     Route: 048
  2. COVID?19 VACCINE NRVV AD (CHADOX1 NCOV?19) [Concomitant]
     Dosage: FIRST DOSE

REACTIONS (3)
  - Subclavian artery thrombosis [Unknown]
  - Hypoaesthesia [Unknown]
  - Ischaemic stroke [Unknown]
